FAERS Safety Report 6903419-X (Version None)
Quarter: 2010Q3

REPORT INFORMATION
  Report Type: 
  Country: None (occurrence: None)
  Receive Date: 20100803
  Receipt Date: 20081001
  Transmission Date: 20110219
  Serious: No
  Sender: FDA-Public Use
  Company Number: US-PFIZER INC-2008080161

PATIENT
  Sex: Female
  Weight: 83.6 kg

DRUGS (3)
  1. LYRICA [Suspect]
     Indication: NEURALGIA
     Dates: start: 20080909
  2. HYZAAR [Concomitant]
  3. VITAMIN TAB [Concomitant]

REACTIONS (1)
  - WEIGHT INCREASED [None]
